FAERS Safety Report 23050314 (Version 1)
Quarter: 2023Q4

REPORT INFORMATION
  Report Type: Spontaneous
  Country: US (occurrence: None)
  Receive Date: 20231009
  Receipt Date: 20231009
  Transmission Date: 20240109
  Serious: Yes (Other)
  Sender: FDA-Public Use
  Company Number: None

PATIENT
  Age: 73 Year
  Sex: Female

DRUGS (1)
  1. IMATINIB MESYLATE [Suspect]
     Active Substance: IMATINIB MESYLATE
     Dosage: FREQUENCY : DAILY;?

REACTIONS (7)
  - Malaise [None]
  - Nasopharyngitis [None]
  - Rhinorrhoea [None]
  - Cough [None]
  - Pain [None]
  - Pyrexia [None]
  - SARS-CoV-2 test positive [None]
